FAERS Safety Report 16119641 (Version 5)
Quarter: 2021Q2

REPORT INFORMATION
  Report Type: Spontaneous
  Country: CA (occurrence: CA)
  Receive Date: 20190326
  Receipt Date: 20210406
  Transmission Date: 20210716
  Serious: Yes (Death, Other)
  Sender: FDA-Public Use
  Company Number: CA-PFIZER INC-2019087172

PATIENT
  Age: 86 Year
  Sex: Female
  Weight: 64 kg

DRUGS (7)
  1. PAMIDRONATE [Concomitant]
     Active Substance: PAMIDRONATE DISODIUM
     Indication: METASTASES TO BONE
     Dosage: UNK
  2. IBRANCE [Suspect]
     Active Substance: PALBOCICLIB
     Indication: BREAST CANCER METASTATIC
     Dosage: 125 MG, CYCLIC (DAILY X 21 DAYS, OFF 7 DAYS)
     Route: 048
     Dates: start: 20190215, end: 20201106
  3. METONIA [Concomitant]
     Active Substance: METOCLOPRAMIDE
     Indication: NAUSEA
     Dosage: 10 MG, 4X/DAY (5 MG TWO TABS EVERY 6 HRS)
     Dates: start: 20190115
  4. RIVAROXABAN [Concomitant]
     Active Substance: RIVAROXABAN
     Dosage: UNK
  5. FULVESTRANT. [Suspect]
     Active Substance: FULVESTRANT
     Indication: BREAST CANCER
     Dosage: UNK
     Dates: start: 201902
  6. ZOPICLONE [Concomitant]
     Active Substance: ZOPICLONE
  7. SOTALOL. [Concomitant]
     Active Substance: SOTALOL
     Dosage: UNK

REACTIONS (13)
  - Death [Fatal]
  - Epistaxis [Unknown]
  - Nausea [Recovering/Resolving]
  - Dyspnoea [Recovered/Resolved]
  - Pericardial effusion [Unknown]
  - Heart rate irregular [Recovered/Resolved]
  - Pollakiuria [Recovered/Resolved]
  - Pleural effusion [Unknown]
  - Hypertension [Recovering/Resolving]
  - Malaise [Unknown]
  - Fatigue [Unknown]
  - Diarrhoea [Not Recovered/Not Resolved]
  - Eructation [Unknown]
